FAERS Safety Report 21136658 (Version 1)
Quarter: 2022Q3

REPORT INFORMATION
  Report Type: Spontaneous
  Country: US (occurrence: None)
  Receive Date: 20220726
  Receipt Date: 20220726
  Transmission Date: 20221027
  Serious: Yes (Hospitalization)
  Sender: FDA-Public Use
  Company Number: None

PATIENT
  Age: 71 Year
  Sex: Male
  Weight: 126 kg

DRUGS (1)
  1. PACLITAXEL [Suspect]
     Active Substance: PACLITAXEL
     Indication: Neoplasm malignant
     Dosage: FREQUENCY : ONCE;?
     Route: 042
     Dates: start: 20220712, end: 20220712

REACTIONS (4)
  - Flushing [None]
  - Dyspnoea [None]
  - Infusion related reaction [None]
  - Blood pressure decreased [None]

NARRATIVE: CASE EVENT DATE: 20220712
